FAERS Safety Report 16186718 (Version 5)
Quarter: 2020Q2

REPORT INFORMATION
  Report Type: Spontaneous
  Country: US (occurrence: US)
  Receive Date: 20190411
  Receipt Date: 20200519
  Transmission Date: 20200713
  Serious: Yes (Death, Hospitalization)
  Sender: FDA-Public Use
  Company Number: US-ACTELION-A-NJ2019-188045

PATIENT
  Sex: Male

DRUGS (1)
  1. OPSUMIT [Suspect]
     Active Substance: MACITENTAN
     Indication: PULMONARY HYPERTENSION
     Dosage: 10 MG
     Route: 048

REACTIONS (7)
  - Hospitalisation [Unknown]
  - Dysstasia [Unknown]
  - General physical health deterioration [Unknown]
  - Product dose omission [Unknown]
  - Wheelchair user [Unknown]
  - Death [Fatal]
  - Gait disturbance [Unknown]
